FAERS Safety Report 4330359-5 (Version None)
Quarter: 2004Q1

REPORT INFORMATION
  Report Type: 
  Country: None (occurrence: None)
  Receive Date: 20040329
  Receipt Date: 20040317
  Transmission Date: 20041129
  Serious: Yes (Hospitalization)
  Sender: FDA-Public Use
  Company Number: 200403506

PATIENT

DRUGS (1)
  1. MEBENDAZOLE [Suspect]
     Indication: TOXOCARIASIS
     Dosage: PO
     Route: 048

REACTIONS (2)
  - ASTHMA [None]
  - DERMATITIS ALLERGIC [None]
